FAERS Safety Report 7373026-6 (Version None)
Quarter: 2011Q1

REPORT INFORMATION
  Report Type: 
  Country: None (occurrence: None)
  Receive Date: 20110324
  Receipt Date: 20110321
  Transmission Date: 20110831
  Serious: Yes (Other)
  Sender: FDA-Public Use
  Company Number: FR-ABBOTT-11P-056-0713644-00

PATIENT
  Sex: Female

DRUGS (2)
  1. TAXOTERE [Suspect]
     Indication: BREAST CANCER FEMALE
     Route: 042
     Dates: start: 20110111
  2. ENANTONE LP 3.75 MG PREP [Suspect]
     Indication: BREAST CANCER FEMALE
     Route: 058
     Dates: start: 20101101

REACTIONS (4)
  - NEUTROPENIA [None]
  - SKIN TOXICITY [None]
  - BONE PAIN [None]
  - MYALGIA [None]
